FAERS Safety Report 18403605 (Version 1)
Quarter: 2020Q4

REPORT INFORMATION
  Report Type: Spontaneous
  Country: US (occurrence: US)
  Receive Date: 20201019
  Receipt Date: 20201019
  Transmission Date: 20210114
  Serious: Yes (Disabling)
  Sender: FDA-Public Use
  Company Number: None

PATIENT
  Age: 63 Year
  Sex: Female
  Weight: 99 kg

DRUGS (10)
  1. CPAP [Concomitant]
     Active Substance: DEVICE
  2. ANTI DEPRESSANTS [Concomitant]
     Active Substance: UNSPECIFIED INGREDIENT
  3. CAL-MAG [Concomitant]
  4. INCRUSE ELLIPTA [Concomitant]
     Active Substance: UMECLIDINIUM BROMIDE
  5. LOVASARTIN [Concomitant]
  6. B-12 INJECTIONS [Concomitant]
  7. FOLIC ACID. [Concomitant]
     Active Substance: FOLIC ACID
  8. SIMPONI ARIA [Suspect]
     Active Substance: GOLIMUMAB
     Indication: RHEUMATOID ARTHRITIS
     Dosage: ?          QUANTITY:1 INJECTION(S);OTHER FREQUENCY:EVERY 8 WEEKS;?
     Route: 042
  9. HPA INHALER [Concomitant]
  10. MULTI VITAMIN [Concomitant]
     Active Substance: VITAMINS

REACTIONS (3)
  - Cough [None]
  - Back pain [None]
  - Asthma [None]

NARRATIVE: CASE EVENT DATE: 20180101
